FAERS Safety Report 7780791-2 (Version None)
Quarter: 2011Q3

REPORT INFORMATION
  Report Type: 
  Country: None (occurrence: None)
  Receive Date: 20110927
  Receipt Date: 20110921
  Transmission Date: 20111222
  Serious: No
  Sender: FDA-Public Use
  Company Number: US-PFIZER INC-2011225796

PATIENT
  Age: 7 Year
  Sex: Female
  Weight: 26.304 kg

DRUGS (1)
  1. ZITHROMAX [Suspect]
     Indication: INFECTION
     Dosage: DAILY
     Route: 048
     Dates: start: 20110819

REACTIONS (1)
  - VOMITING [None]
